FAERS Safety Report 6939097-3 (Version None)
Quarter: 2010Q3

REPORT INFORMATION
  Report Type: 
  Country: None (occurrence: None)
  Receive Date: 20100824
  Receipt Date: 20100804
  Transmission Date: 20110219
  Serious: Yes (Hospitalization, Other)
  Sender: FDA-Public Use
  Company Number: DE-CELGENEUS-062-21880-09110220

PATIENT
  Age: 43 Year
  Sex: Female
  Weight: 90 kg

DRUGS (13)
  1. REVLIMID [Suspect]
     Indication: MULTIPLE MYELOMA
     Route: 048
     Dates: start: 20091029, end: 20091110
  2. ADRIAMYCIN PFS [Suspect]
     Indication: MULTIPLE MYELOMA
     Route: 051
     Dates: start: 20091029, end: 20091102
  3. DEXAMETHASONE [Suspect]
     Indication: MULTIPLE MYELOMA
     Route: 048
     Dates: start: 20091029, end: 20091101
  4. PANTOPRAZOLE SODIUM [Concomitant]
     Indication: PROPHYLAXIS
     Route: 065
  5. SULFAMETHOXAZOLE AND TRIMETHOPRIM DOUBLE STRENGTH [Concomitant]
     Route: 065
     Dates: start: 20091031, end: 20091031
  6. SULFAMETHOXAZOLE AND TRIMETHOPRIM DOUBLE STRENGTH [Concomitant]
     Route: 065
     Dates: start: 20091101, end: 20091101
  7. SULFAMETHOXAZOLE AND TRIMETHOPRIM DOUBLE STRENGTH [Concomitant]
     Route: 065
     Dates: start: 20091107, end: 20091108
  8. FOLIC ACID [Concomitant]
     Route: 065
     Dates: start: 20091031, end: 20091031
  9. FOLIC ACID [Concomitant]
     Route: 065
     Dates: start: 20091101, end: 20091101
  10. PAMIDRONTAT [Concomitant]
     Indication: OSTEOLYSIS
     Route: 051
     Dates: start: 20091102, end: 20091102
  11. CLEXANE [Concomitant]
     Indication: THROMBOSIS PROPHYLAXIS
     Route: 058
  12. KALINOR [Concomitant]
     Route: 065
  13. NOVALGIN [Concomitant]
     Indication: BONE PAIN
     Dosage: 30 GGT
     Route: 065
     Dates: start: 20091111

REACTIONS (3)
  - ACCIDENTAL OVERDOSE [None]
  - PYREXIA [None]
  - STOMATITIS [None]
